FAERS Safety Report 4703702-2 (Version None)
Quarter: 2005Q2

REPORT INFORMATION
  Report Type: 
  Country: None (occurrence: None)
  Receive Date: 20050628
  Receipt Date: 20050613
  Transmission Date: 20051028
  Serious: Yes (Hospitalization, Other)
  Sender: FDA-Public Use
  Company Number: US_0412109405

PATIENT
  Age: 50 Year
  Sex: Male
  Weight: 86 kg

DRUGS (3)
  1. ZYPREXA [Suspect]
     Indication: SCHIZOPHRENIA, PARANOID TYPE
     Dosage: 10 MG
     Dates: start: 19970101, end: 20020101
  2. ATORVASTATIN CALCIUM [Concomitant]
  3. HALOPERIDOL (HALOPERIDOL DECANOATE) [Concomitant]

REACTIONS (16)
  - ACUTE MYOCARDIAL INFARCTION [None]
  - ANGINA PECTORIS [None]
  - AORTIC DISORDER [None]
  - BLOOD CHOLESTEROL INCREASED [None]
  - CARDIOPULMONARY FAILURE [None]
  - CARDIOVASCULAR DISORDER [None]
  - CORONARY ARTERY DISEASE [None]
  - CORONARY ARTERY STENOSIS [None]
  - DIABETES MELLITUS INADEQUATE CONTROL [None]
  - HAEMODYNAMIC INSTABILITY [None]
  - INSULIN-REQUIRING TYPE II DIABETES MELLITUS [None]
  - MITRAL VALVE INCOMPETENCE [None]
  - SOMNOLENCE [None]
  - TRICUSPID VALVE INCOMPETENCE [None]
  - VENTRICULAR DYSFUNCTION [None]
  - WEIGHT INCREASED [None]
